FAERS Safety Report 7728198-8 (Version None)
Quarter: 2011Q3

REPORT INFORMATION
  Report Type: 
  Country: None (occurrence: None)
  Receive Date: 20110905
  Receipt Date: 20110825
  Transmission Date: 20111222
  Serious: Yes (Other)
  Sender: FDA-Public Use
  Company Number: PHHY2011AU76276

PATIENT
  Sex: Male

DRUGS (2)
  1. DASATINIB [Concomitant]
  2. GLEEVEC [Suspect]

REACTIONS (4)
  - MYALGIA [None]
  - BLOOD CREATINE PHOSPHOKINASE INCREASED [None]
  - ERECTILE DYSFUNCTION [None]
  - MYOPATHY [None]
